FAERS Safety Report 13589743 (Version 1)
Quarter: 2017Q2

REPORT INFORMATION
  Report Type: Spontaneous
  Country: US (occurrence: US)
  Receive Date: 20170530
  Receipt Date: 20170530
  Transmission Date: 20170830
  Serious: No
  Sender: FDA-Public Use
  Company Number: US-WEST-WARD PHARMACEUTICALS CORP.-US-H14001-17-00081

PATIENT
  Age: 32 Year
  Sex: Male
  Weight: 86.26 kg

DRUGS (1)
  1. TESTOSTERONE CYPIONATE. [Suspect]
     Active Substance: TESTOSTERONE CYPIONATE
     Indication: BLOOD TESTOSTERONE DECREASED
     Route: 058
     Dates: start: 20161230

REACTIONS (5)
  - Incorrect route of drug administration [Unknown]
  - Injection site erythema [Not Recovered/Not Resolved]
  - Injection site pain [Not Recovered/Not Resolved]
  - Injection site mass [Not Recovered/Not Resolved]
  - Injection site inflammation [Not Recovered/Not Resolved]

NARRATIVE: CASE EVENT DATE: 20161230
